FAERS Safety Report 26173067 (Version 1)
Quarter: 2025Q4

REPORT INFORMATION
  Report Type: Report from Study
  Country: US (occurrence: US)
  Receive Date: 20251218
  Receipt Date: 20251218
  Transmission Date: 20260117
  Serious: Yes (Other)
  Sender: ALEXION PHARMACEUTICALS
  Company Number: US-ASTRAZENECA-202510NAM033230US

PATIENT
  Age: 75 Year
  Sex: Female

DRUGS (1)
  1. STRENSIQ [Suspect]
     Active Substance: ASFOTASE ALFA
     Indication: Phosphorus metabolism disorder
     Dosage: 2 MILLIGRAM/KILOGRAM, TIW, AS DIRECTED, ROTATE INJECTION SITES
     Route: 065

REACTIONS (15)
  - Syncope [Unknown]
  - Bone pain [Unknown]
  - Muscular weakness [Unknown]
  - Arthralgia [Unknown]
  - Gait disturbance [Unknown]
  - Fibromyalgia [Unknown]
  - Foot fracture [Unknown]
  - Migraine [Unknown]
  - Depression [Unknown]
  - Osteopenia [Unknown]
  - Renal disorder [Unknown]
  - Tooth disorder [Unknown]
  - Myalgia [Unknown]
  - Headache [Unknown]
  - Fatigue [Unknown]
